FAERS Safety Report 21262069 (Version 2)
Quarter: 2022Q3

REPORT INFORMATION
  Report Type: Spontaneous
  Country: BR (occurrence: BR)
  Receive Date: 20220827
  Receipt Date: 20220910
  Transmission Date: 20221026
  Serious: Yes (Hospitalization, Other)
  Sender: FDA-Public Use
  Company Number: BR-NOVARTISPH-NVSC2022BR192699

PATIENT
  Age: 69 Year
  Sex: Male
  Weight: 68 kg

DRUGS (14)
  1. ELTROMBOPAG OLAMINE [Suspect]
     Active Substance: ELTROMBOPAG OLAMINE
     Indication: Aplastic anaemia
     Dosage: 50 MG, TID (14 TABLETS (3 TABLETS PER DAY))
     Route: 048
     Dates: start: 202004
  2. ELTROMBOPAG OLAMINE [Suspect]
     Active Substance: ELTROMBOPAG OLAMINE
     Indication: Paroxysmal nocturnal haemoglobinuria
  3. SIMVASTATIN [Concomitant]
     Active Substance: SIMVASTATIN
     Indication: Blood cholesterol
     Dosage: 1 DOSAGE FORM, QD (STRENGT 20 MG) ((CONCENTRATION: 20 MG)(15 YEARS AGO)
     Route: 048
     Dates: end: 20220801
  4. SIMVASTATIN [Concomitant]
     Active Substance: SIMVASTATIN
     Dosage: 1 DOSAGE FORM, QD (15 YEARS AGO) (STRENGTH: 10 MG)
     Route: 048
     Dates: start: 20220801
  5. ACYCLOVIR [Concomitant]
     Active Substance: ACYCLOVIR
     Indication: Autoimmune disorder
     Dosage: 4 DOSAGE FORM, QD
     Route: 048
     Dates: start: 202004
  6. ACYCLOVIR [Concomitant]
     Active Substance: ACYCLOVIR
     Indication: Aplastic anaemia
  7. ACYCLOVIR [Concomitant]
     Active Substance: ACYCLOVIR
     Indication: Paroxysmal nocturnal haemoglobinuria
  8. CYCLOSPORINE [Concomitant]
     Active Substance: CYCLOSPORINE
     Indication: Product used for unknown indication
     Dosage: 2 DOSAGE FORM, QD
     Route: 048
     Dates: start: 202004
  9. MAGNESIUM SULFATE [Concomitant]
     Active Substance: MAGNESIUM SULFATE
     Indication: Nutritional supplementation
     Dosage: 2 DOSAGE FORM, QD (6 MONTHS AGO)
     Route: 048
  10. BROMOPRIDE [Concomitant]
     Active Substance: BROMOPRIDE
     Indication: Gastrooesophageal reflux disease
     Dosage: 1 DOSAGE FORM, QD
     Route: 048
  11. FOLIC ACID [Concomitant]
     Active Substance: FOLIC ACID
     Indication: Nutritional supplementation
     Dosage: 1 DOSAGE FORM, QD (6 MONTHS AGO)
     Route: 048
     Dates: start: 202004
  12. BACTRIM [Concomitant]
     Active Substance: SULFAMETHOXAZOLE\TRIMETHOPRIM
     Indication: Infection
     Dosage: 1 DOSAGE FORM, TIW (MONDAY, WEDNESD AY, AND FRIDAY)
     Route: 048
     Dates: start: 202002
  13. BACTRIM [Concomitant]
     Active Substance: SULFAMETHOXAZOLE\TRIMETHOPRIM
     Indication: Aplastic anaemia
     Dosage: 800/160 MG, TIW (MONDAY, WEDNESD AY, AND FRIDAY)
     Route: 048
     Dates: start: 20220801
  14. BACTRIM [Concomitant]
     Active Substance: SULFAMETHOXAZOLE\TRIMETHOPRIM
     Indication: Paroxysmal nocturnal haemoglobinuria

REACTIONS (5)
  - Dysentery [Recovered/Resolved]
  - Abdominal pain upper [Recovered/Resolved]
  - Pyrexia [Recovered/Resolved]
  - Vomiting [Recovered/Resolved]
  - Thrombophlebitis [Recovered/Resolved]

NARRATIVE: CASE EVENT DATE: 20220726
